FAERS Safety Report 19997927 (Version 3)
Quarter: 2022Q1

REPORT INFORMATION
  Report Type: Other
  Country: GB (occurrence: None)
  Receive Date: 20211026
  Receipt Date: 20220113
  Transmission Date: 20220424
  Serious: No
  Sender: FDA-Public Use
  Company Number: GB-ROCHE-2740796

PATIENT
  Age: 61 Year
  Sex: Female
  Weight: 92.4 kg

DRUGS (38)
  1. ATEZOLIZUMAB [Suspect]
     Active Substance: ATEZOLIZUMAB
     Indication: Small cell lung cancer extensive stage
     Dosage: FURTHER DOSE ON 26/NOV/2020, 17/DEC/2020, ?DOSE LAST STUDY DRUG ADMIN PRIOR AE 1680 MG?START DATE OF
     Route: 041
     Dates: start: 20201105
  2. ATEZOLIZUMAB [Suspect]
     Active Substance: ATEZOLIZUMAB
     Route: 041
     Dates: start: 20210522
  3. CARBOPLATIN [Suspect]
     Active Substance: CARBOPLATIN
     Indication: Small cell lung cancer extensive stage
     Route: 065
     Dates: start: 20201126
  4. ETOPOSIDE [Suspect]
     Active Substance: ETOPOSIDE
     Indication: Small cell lung cancer extensive stage
     Route: 048
     Dates: start: 20201126
  5. ETOPOSIDE [Suspect]
     Active Substance: ETOPOSIDE
     Route: 048
     Dates: start: 20201218, end: 20201219
  6. ETOPOSIDE [Suspect]
     Active Substance: ETOPOSIDE
     Route: 048
     Dates: start: 20201127, end: 20201128
  7. ETOPOSIDE [Suspect]
     Active Substance: ETOPOSIDE
     Route: 048
     Dates: start: 20210108, end: 20210109
  8. DEXAMETHASONE [Concomitant]
     Active Substance: DEXAMETHASONE
     Dates: start: 20201217, end: 20201217
  9. DEXAMETHASONE [Concomitant]
     Active Substance: DEXAMETHASONE
     Dates: start: 20201126, end: 20201126
  10. DEXAMETHASONE [Concomitant]
     Active Substance: DEXAMETHASONE
     Dates: start: 20210107, end: 20210107
  11. DEXAMETHASONE [Concomitant]
     Active Substance: DEXAMETHASONE
     Dates: start: 20210108, end: 20210110
  12. DEXAMETHASONE [Concomitant]
     Active Substance: DEXAMETHASONE
     Dates: start: 20201127, end: 20201129
  13. DEXAMETHASONE [Concomitant]
     Active Substance: DEXAMETHASONE
     Dates: start: 20201218, end: 20201220
  14. DEXAMETHASONE [Concomitant]
     Active Substance: DEXAMETHASONE
     Dates: start: 20201117, end: 20201129
  15. CHLORPHENIRAMINE MALEATE [Concomitant]
     Active Substance: CHLORPHENIRAMINE MALEATE
     Dates: start: 20201126, end: 20201126
  16. CHLORPHENIRAMINE MALEATE [Concomitant]
     Active Substance: CHLORPHENIRAMINE MALEATE
     Dates: start: 20201217, end: 20201217
  17. CHLORPHENIRAMINE MALEATE [Concomitant]
     Active Substance: CHLORPHENIRAMINE MALEATE
     Dates: start: 20210107, end: 20210107
  18. GRANISETRON [Concomitant]
     Active Substance: GRANISETRON
     Dates: start: 20201126, end: 20201126
  19. GRANISETRON [Concomitant]
     Active Substance: GRANISETRON
     Dates: start: 20201217, end: 20201217
  20. GRANISETRON [Concomitant]
     Active Substance: GRANISETRON
     Dates: start: 20210107, end: 20210107
  21. LEVOTHYROXINE [Concomitant]
     Active Substance: LEVOTHYROXINE
  22. FLUOXETINE [Concomitant]
     Active Substance: FLUOXETINE HYDROCHLORIDE
  23. OMEPRAZOLE [Concomitant]
     Active Substance: OMEPRAZOLE
     Indication: Prophylaxis
  24. TEGRETOL [Concomitant]
     Active Substance: CARBAMAZEPINE
  25. VENTOLIN [Concomitant]
     Active Substance: ALBUTEROL SULFATE
  26. BECLOMETHASONE DIPROPIONATE [Concomitant]
     Active Substance: BECLOMETHASONE DIPROPIONATE
  27. DICLOFENAC [Concomitant]
     Active Substance: DICLOFENAC
  28. RANITIDINE [Concomitant]
     Active Substance: RANITIDINE
     Dates: start: 20201126, end: 20201205
  29. RANITIDINE [Concomitant]
     Active Substance: RANITIDINE
     Dates: start: 20210107, end: 20210116
  30. RANITIDINE [Concomitant]
     Active Substance: RANITIDINE
     Dates: start: 20201217, end: 20201226
  31. CETIRIZINE [Concomitant]
     Active Substance: CETIRIZINE HYDROCHLORIDE
     Dates: start: 20201218, end: 20201220
  32. CETIRIZINE [Concomitant]
     Active Substance: CETIRIZINE HYDROCHLORIDE
     Dates: start: 20201127, end: 20201129
  33. CETIRIZINE [Concomitant]
     Active Substance: CETIRIZINE HYDROCHLORIDE
     Dates: start: 20210108, end: 20210110
  34. FILGRASTIM [Concomitant]
     Active Substance: FILGRASTIM
     Dates: start: 20201130, end: 20201204
  35. FILGRASTIM [Concomitant]
     Active Substance: FILGRASTIM
     Dates: start: 20201221, end: 20201225
  36. FILGRASTIM [Concomitant]
     Active Substance: FILGRASTIM
     Dates: start: 20210111, end: 20210115
  37. AMITRIPTYLINE [Concomitant]
     Active Substance: AMITRIPTYLINE
  38. BENZYDAMINE [Concomitant]
     Active Substance: BENZYDAMINE

REACTIONS (9)
  - Nausea [Not Recovered/Not Resolved]
  - Dysphagia [Recovered/Resolved]
  - Dyspnoea [Recovered/Resolved]
  - Alopecia [Recovered/Resolved]
  - Fatigue [Not Recovered/Not Resolved]
  - Constipation [Not Recovered/Not Resolved]
  - Hyperglycaemia [Recovered/Resolved]
  - Hypothyroidism [Not Recovered/Not Resolved]
  - Pruritus [Not Recovered/Not Resolved]

NARRATIVE: CASE EVENT DATE: 20201215
